FAERS Safety Report 6272526-X (Version None)
Quarter: 2009Q3

REPORT INFORMATION
  Report Type: 
  Country: None (occurrence: None)
  Receive Date: 20090717
  Receipt Date: 20090708
  Transmission Date: 20100115
  Serious: Yes (Other)
  Sender: FDA-Public Use
  Company Number: PHHY2008MX32694

PATIENT
  Sex: Female

DRUGS (6)
  1. DIOVAN HCT [Suspect]
     Indication: HYPERTENSION
     Dosage: 1 TABLET (160/12.5 MG) PER DAY
     Route: 048
     Dates: start: 20080501
  2. BEZAFIBRATE [Concomitant]
     Indication: BLOOD CHOLESTEROL
     Dosage: 1 TAB PER DAY
     Route: 048
     Dates: start: 20081118
  3. PRAVASTATIN [Concomitant]
     Indication: BLOOD CHOLESTEROL
     Dosage: 1 TABLET PER DAY
     Route: 048
     Dates: start: 20081118
  4. CALCITRIOL [Concomitant]
     Indication: BONE DISORDER
     Dosage: 1 TABLET PER DAY
     Route: 048
     Dates: start: 20080202
  5. VERAPAMIL [Concomitant]
     Indication: HYPERTENSION
     Dosage: 1 TABLET PER DAY
     Route: 048
  6. NAFADREN [Concomitant]
     Indication: BONE DISORDER
     Dosage: 1 TABLET PER DAY
     Dates: start: 20080201

REACTIONS (1)
  - HERPES VIRUS INFECTION [None]
